FAERS Safety Report 4756907-9 (Version None)
Quarter: 2005Q3

REPORT INFORMATION
  Report Type: 
  Country: None (occurrence: None)
  Receive Date: 20050830
  Receipt Date: 20050725
  Transmission Date: 20060218
  Serious: No
  Sender: FDA-Public Use
  Company Number: US-GLAXOSMITHKLINE-A0567566A

PATIENT
  Age: 54 Year
  Sex: Male

DRUGS (5)
  1. AVODART [Suspect]
     Indication: BENIGN PROSTATIC HYPERPLASIA
     Dosage: .5MG PER DAY
     Route: 048
     Dates: start: 20041201
  2. FLOMAX [Concomitant]
  3. CELEBREX [Concomitant]
  4. RHINOCORT [Concomitant]
  5. ZYRTEC [Concomitant]

REACTIONS (1)
  - GYNAECOMASTIA [None]
